FAERS Safety Report 5819493-8 (Version None)
Quarter: 2008Q3

REPORT INFORMATION
  Report Type: 
  Country: None (occurrence: None)
  Receive Date: 20080718
  Receipt Date: 20080708
  Transmission Date: 20090109
  Serious: Yes (Hospitalization)
  Sender: FDA-Public Use
  Company Number: 002066

PATIENT
  Age: 69 Year
  Sex: Male

DRUGS (6)
  1. BUSULFEX [Suspect]
     Indication: STEM CELL TRANSPLANT
     Dosage: 30 ML INTRAVENOUS
     Route: 042
     Dates: start: 20071018, end: 20071020
  2. FLUDARABINE PHSOPHATE  (FLUDARABINE PHOSPHATE) [Concomitant]
  3. VALPROATE SODIUM [Concomitant]
  4. MELPHALAN (MELPHALAN) [Concomitant]
  5. FILGRASTIM [Concomitant]
  6. TACTROLIMUS [Concomitant]

REACTIONS (8)
  - ANOREXIA [None]
  - CORD BLOOD TRANSPLANT THERAPY [None]
  - DIARRHOEA [None]
  - GRAFT VERSUS HOST DISEASE [None]
  - JAUNDICE CHOLESTATIC [None]
  - MALAISE [None]
  - NAUSEA [None]
  - STOMATITIS [None]
